FAERS Safety Report 8915423 (Version 4)
Quarter: 2013Q1

REPORT INFORMATION
  Report Type: Report from Study
  Country: US (occurrence: US)
  Receive Date: 20121119
  Receipt Date: 20130124
  Transmission Date: 20140127
  Serious: Yes (Other)
  Sender: FDA-Public Use
  Company Number: US-NAPPMUNDI-USA-2012-0095787

PATIENT
  Sex: Female
  Weight: 67.57 kg

DRUGS (2)
  1. OXYCONTIN (NDA 22-272) [Suspect]
     Indication: PAIN
     Dosage: 60 MG, Q8H
     Route: 048
     Dates: start: 20101229
  2. FLEXERIL                           /00428402/ [Concomitant]
     Indication: MUSCLE SPASMS

REACTIONS (10)
  - Vision blurred [Unknown]
  - Fall [Unknown]
  - Muscle spasms [Unknown]
  - Sinusitis [Not Recovered/Not Resolved]
  - Blood pressure increased [Unknown]
  - Headache [Not Recovered/Not Resolved]
  - Somnolence [Unknown]
  - Swelling [Unknown]
  - Migraine [Unknown]
  - Lacunar infarction [Unknown]
